FAERS Safety Report 13525214 (Version 1)
Quarter: 2017Q2

REPORT INFORMATION
  Report Type: Spontaneous
  Country: US (occurrence: US)
  Receive Date: 20170508
  Receipt Date: 20170508
  Transmission Date: 20170830
  Serious: Yes (Hospitalization, Other)
  Sender: FDA-Public Use
  Company Number: US-ROCHE-1137743

PATIENT
  Age: 50 Year
  Sex: Female

DRUGS (5)
  1. LEUCOVORIN. [Suspect]
     Active Substance: LEUCOVORIN
     Indication: COLON CANCER
     Dosage: OVER 2 HOURS
     Route: 042
  2. 5-FU [Suspect]
     Active Substance: FLUOROURACIL
     Dosage: OVER 46 HOURS
     Route: 042
  3. BEVACIZUMAB [Suspect]
     Active Substance: BEVACIZUMAB
     Indication: COLON CANCER
     Route: 065
  4. OXALIPLATIN. [Suspect]
     Active Substance: OXALIPLATIN
     Indication: COLON CANCER
     Route: 042
  5. 5-FU [Suspect]
     Active Substance: FLUOROURACIL
     Indication: COLON CANCER
     Route: 040

REACTIONS (5)
  - Alopecia [Unknown]
  - Mucosal inflammation [Unknown]
  - Asthenia [Unknown]
  - Febrile neutropenia [Recovered/Resolved]
  - Palmar-plantar erythrodysaesthesia syndrome [Unknown]
